FAERS Safety Report 5066714-8 (Version None)
Quarter: 2006Q3

REPORT INFORMATION
  Report Type: 
  Country: None (occurrence: None)
  Receive Date: 20060801
  Receipt Date: 20060728
  Transmission Date: 20061208
  Serious: Yes (Other)
  Sender: FDA-Public Use
  Company Number: 2006014146

PATIENT
  Age: 32 Year
  Sex: Female
  Weight: 120 kg

DRUGS (4)
  1. QUILONUM RETARD [Suspect]
     Dosage: 2250MG SINGLE DOSE
     Route: 048
     Dates: start: 20060728, end: 20060728
  2. PROMETHAZINE HCL [Suspect]
     Dosage: 200MG SINGLE DOSE
     Route: 048
     Dates: start: 20060728, end: 20060728
  3. SEROQUEL [Suspect]
     Dosage: 400MG SINGLE DOSE
     Route: 048
     Dates: start: 20060728, end: 20060728
  4. TAVOR [Suspect]
     Dosage: 8.5MG SINGLE DOSE
     Route: 048
     Dates: start: 20060728, end: 20060728

REACTIONS (3)
  - FATIGUE [None]
  - INTENTIONAL OVERDOSE [None]
  - SUICIDE ATTEMPT [None]
